FAERS Safety Report 9410013 (Version 1)
Quarter: 2013Q3

REPORT INFORMATION
  Report Type: Spontaneous
  Country: FR (occurrence: FR)
  Receive Date: 20130719
  Receipt Date: 20130719
  Transmission Date: 20140515
  Serious: Yes (Hospitalization, Other)
  Sender: FDA-Public Use
  Company Number: FR-PFIZER INC-2013206966

PATIENT
  Age: 75 Year
  Sex: Female
  Weight: 49 kg

DRUGS (12)
  1. TAHOR [Suspect]
     Dosage: 80 MG DAILY
     Route: 048
     Dates: start: 20130326, end: 20130423
  2. BRILIQUE [Interacting]
     Dosage: 2 TABLETS DAILY
     Route: 048
     Dates: start: 20130326, end: 20130425
  3. TEMESTA [Concomitant]
     Dosage: 1 DF, DAILY
  4. COVERSYL [Concomitant]
     Dosage: 2.5 MG, DAILY
     Dates: start: 20130326, end: 20130425
  5. COVERSYL [Concomitant]
     Dosage: 2.5 MG DAILY
     Dates: start: 20130514
  6. KARDEGIC [Concomitant]
     Dosage: 75 MG, DAILY
     Dates: start: 20130326
  7. CARDENSIEL [Concomitant]
     Dosage: 5 MG, DAILY
     Dates: start: 20130326
  8. SEROPLEX [Concomitant]
     Dosage: 5 MG, DAILY
  9. PLAVIX [Concomitant]
     Dosage: 75 MG, DAILY
  10. INIPOMP [Concomitant]
     Dosage: 20 MG, DAILY
  11. DAFALGAN [Concomitant]
     Dosage: 1 G, 3X/DAY (DAILY)
  12. LASILIX [Concomitant]
     Dosage: 40 MG, UNK
     Dates: start: 20130402, end: 20130416

REACTIONS (6)
  - Rhabdomyolysis [Recovered/Resolved]
  - Renal failure acute [Recovering/Resolving]
  - Drug interaction [Recovering/Resolving]
  - Aspartate aminotransferase increased [Unknown]
  - Alanine aminotransferase increased [Unknown]
  - Gamma-glutamyltransferase increased [Unknown]
